FAERS Safety Report 8606528-2 (Version None)
Quarter: 2012Q3

REPORT INFORMATION
  Report Type: 
  Country: None (occurrence: None)
  Receive Date: 20120820
  Receipt Date: 20120807
  Transmission Date: 20120928
  Serious: Yes (Death)
  Sender: FDA-Public Use
  Company Number: US-MYLANLABS-2011S1007777

PATIENT
  Age: 25 Year
  Sex: Female
  Weight: 61.69 kg

DRUGS (15)
  1. FENTANYL-100 [Suspect]
     Indication: PAIN
     Dosage: Q3DAYS
     Route: 062
  2. OXYCONTIN [Concomitant]
  3. DIAZEPAM [Concomitant]
  4. HYDROCODONE BITARTRATE [Concomitant]
  5. PROCTOSOL [Concomitant]
  6. FENTANYL-100 [Suspect]
     Dosage: Q3DAYS
     Route: 062
  7. OXYCODONE AND ACETAMINOPHEN [Concomitant]
     Dosage: 5MG/325MG
  8. VITAMIN D [Concomitant]
  9. OMEPRAZOLE [Concomitant]
  10. PROPRANOLOL HYDROCHLORIDE [Concomitant]
  11. SUMATRIPTAN SUCCINATE [Concomitant]
  12. LYRICA [Concomitant]
  13. HYDROCODONE BITARTRATE [Concomitant]
  14. EMETROL /00327401/ [Concomitant]
  15. ONDANSETRON [Concomitant]

REACTIONS (1)
  - TOXICITY TO VARIOUS AGENTS [None]
